FAERS Safety Report 9240875 (Version 1)
Quarter: 2013Q2

REPORT INFORMATION
  Report Type: Spontaneous
  Country: US (occurrence: US)
  Receive Date: 20130418
  Receipt Date: 20130418
  Transmission Date: 20140414
  Serious: No
  Sender: FDA-Public Use
  Company Number: US-SANOFI-AVENTIS-2013SA003735

PATIENT
  Age: 67 Year
  Sex: Female

DRUGS (1)
  1. LOVENOX [Suspect]
     Dates: start: 201207

REACTIONS (3)
  - Injection site discolouration [Unknown]
  - Injection site mass [Unknown]
  - Injection site pain [Unknown]
